FAERS Safety Report 16424565 (Version 1)
Quarter: 2019Q2

REPORT INFORMATION
  Report Type: Spontaneous
  Country: IT (occurrence: IT)
  Receive Date: 20190613
  Receipt Date: 20190613
  Transmission Date: 20190711
  Serious: Yes (Hospitalization)
  Sender: FDA-Public Use
  Company Number: IT-TEVA-2019-IT-1061596

PATIENT
  Age: 22 Year
  Sex: Male

DRUGS (2)
  1. RISPERDAL [Suspect]
     Active Substance: RISPERIDONE
     Indication: BIPOLAR DISORDER
     Dosage: 4MG PER DAY
     Route: 048
  2. CARBAMAZEPINA TEVA 200 MG [Suspect]
     Active Substance: CARBAMAZEPINE
     Dosage: DOSAGE FORM: TABLETS?200MG PER DAY
     Route: 048

REACTIONS (3)
  - Sopor [Unknown]
  - Suicidal behaviour [Unknown]
  - Toxicity to various agents [Unknown]

NARRATIVE: CASE EVENT DATE: 20090911
